FAERS Safety Report 6589122-7 (Version None)
Quarter: 2010Q1

REPORT INFORMATION
  Report Type: 
  Country: None (occurrence: None)
  Receive Date: 20100218
  Receipt Date: 20100209
  Transmission Date: 20100710
  Serious: Yes (Death)
  Sender: FDA-Public Use
  Company Number: US-ROXANE LABORATORIES, INC.-2010-DE-00953GD

PATIENT
  Age: 58 Year
  Sex: Female

DRUGS (5)
  1. MORPHINE SULFATE [Suspect]
  2. ALPRAZOLAM [Suspect]
  3. SECOBARBITAL [Suspect]
  4. CARISOPRODOL [Suspect]
  5. CLONAZEPAM [Suspect]

REACTIONS (1)
  - DRUG ABUSE [None]
